FAERS Safety Report 17243579 (Version 1)
Quarter: 2019Q4

REPORT INFORMATION
  Report Type: Spontaneous
  Country: US (occurrence: US)
  Receive Date: 20191212
  Receipt Date: 20191212
  Transmission Date: 20200122
  Serious: Yes (Hospitalization)
  Sender: FDA-Public Use
  Company Number: None

PATIENT
  Age: 53 Year
  Sex: Male
  Weight: 58.9 kg

DRUGS (2)
  1. GEMCITABINE HYDROCHLORIDE. [Suspect]
     Active Substance: GEMCITABINE HYDROCHLORIDE
     Dates: end: 20191115
  2. TAXOL [Suspect]
     Active Substance: PACLITAXEL
     Dates: end: 20191115

REACTIONS (2)
  - Gastrostomy tube site complication [None]
  - Pneumonia bacterial [None]

NARRATIVE: CASE EVENT DATE: 20191118
